FAERS Safety Report 14246792 (Version 2)
Quarter: 2018Q1

REPORT INFORMATION
  Report Type: Spontaneous
  Country: US (occurrence: US)
  Receive Date: 20171204
  Receipt Date: 20180205
  Transmission Date: 20180508
  Serious: No
  Sender: FDA-Public Use
  Company Number: US-PFIZER INC-2017516484

PATIENT
  Age: 67 Year
  Sex: Female
  Weight: 67.13 kg

DRUGS (1)
  1. XELJANZ XR [Suspect]
     Active Substance: TOFACITINIB CITRATE
     Indication: RHEUMATOID ARTHRITIS
     Dosage: 11 MG, 1X/DAY
     Route: 048
     Dates: start: 201705, end: 20171128

REACTIONS (4)
  - Cough [Recovered/Resolved]
  - Red blood cell sedimentation rate increased [Unknown]
  - Condition aggravated [Recovered/Resolved]
  - Skin papilloma [Recovered/Resolved]

NARRATIVE: CASE EVENT DATE: 201707
